FAERS Safety Report 22160097 (Version 1)
Quarter: 2023Q1

REPORT INFORMATION
  Report Type: Other
  Country: HK (occurrence: None)
  Receive Date: 20230331
  Receipt Date: 20230331
  Transmission Date: 20230418
  Serious: Yes (Other)
  Sender: FDA-Public Use
  Company Number: HK-ROCHE-3317618

PATIENT
  Age: 13 Year
  Sex: Male

DRUGS (8)
  1. MYCOPHENOLATE MOFETIL [Suspect]
     Active Substance: MYCOPHENOLATE MOFETIL
     Indication: Immunosuppression
     Route: 065
  2. PREDNISOLONE [Suspect]
     Active Substance: PREDNISOLONE
     Indication: Immunosuppression
     Route: 065
  3. CYCLOSPORINE [Suspect]
     Active Substance: CYCLOSPORINE
     Indication: Immunosuppression
     Route: 065
  4. TEMOZOLOMIDE [Concomitant]
     Active Substance: TEMOZOLOMIDE
  5. IRINOTECAN [Concomitant]
     Active Substance: IRINOTECAN
  6. FLUDARABINE [Concomitant]
     Active Substance: FLUDARABINE PHOSPHATE
  7. THIOTEPA [Concomitant]
     Active Substance: THIOTEPA
  8. MELPHALAN [Concomitant]
     Active Substance: MELPHALAN

REACTIONS (5)
  - Pneumonia necrotising [Unknown]
  - Infectious pleural effusion [Unknown]
  - Nocardiosis [Unknown]
  - Pneumothorax [Unknown]
  - Bronchopleural fistula [Unknown]
